FAERS Safety Report 5953603-7 (Version None)
Quarter: 2008Q4

REPORT INFORMATION
  Report Type: 
  Country: None (occurrence: None)
  Receive Date: 20081114
  Receipt Date: 20081110
  Transmission Date: 20090506
  Serious: Yes (Other)
  Sender: FDA-Public Use
  Company Number: B0536668A

PATIENT
  Age: 43 Year
  Sex: Male

DRUGS (5)
  1. ALKERAN [Suspect]
     Indication: STEM CELL TRANSPLANT
     Dosage: 100MGM2 PER DAY
     Route: 042
  2. ONCOVIN [Concomitant]
     Route: 042
  3. DOXORUBICIN HYDROCHLORIDE [Concomitant]
     Route: 042
  4. DEXAMETHASONE ACETATE [Concomitant]
     Route: 042
  5. ENDOXAN [Concomitant]
     Route: 042

REACTIONS (7)
  - ANOREXIA [None]
  - DIARRHOEA [None]
  - INFECTION [None]
  - MUCOUS MEMBRANE DISORDER [None]
  - NAUSEA [None]
  - PYREXIA [None]
  - VOMITING [None]
